FAERS Safety Report 5567233-2 (Version None)
Quarter: 2007Q4

REPORT INFORMATION
  Report Type: 
  Country: None (occurrence: None)
  Receive Date: 20071219
  Receipt Date: 20071217
  Transmission Date: 20080405
  Serious: Yes (Hospitalization)
  Sender: FDA-Public Use
  Company Number: MX-BOEHRINGER INGELHEIM PHARMACEUTICALS, INC.-2007-BP-26276MX

PATIENT
  Age: 7 Year
  Sex: Male
  Weight: 35.5 kg

DRUGS (2)
  1. COMBIVENT [Suspect]
     Indication: ASTHMA
     Route: 048
     Dates: start: 20070101
  2. MONTELUKAST SODIUM [Concomitant]

REACTIONS (1)
  - ASTHMA [None]
